FAERS Safety Report 5182895-X (Version None)
Quarter: 2006Q4

REPORT INFORMATION
  Report Type: 
  Country: None (occurrence: None)
  Receive Date: 20061220
  Receipt Date: 20051130
  Transmission Date: 20070319
  Serious: No
  Sender: FDA-Public Use
  Company Number: US-GLAXOSMITHKLINE-A0584017A

PATIENT
  Age: 45 Year
  Sex: Female

DRUGS (1)
  1. EQUATE NTS 21MG [Suspect]
     Dates: start: 20051123, end: 20051123

REACTIONS (6)
  - BLOOD PRESSURE INCREASED [None]
  - FLUSHING [None]
  - HEART RATE INCREASED [None]
  - NAUSEA [None]
  - PYREXIA [None]
  - VOMITING [None]
